FAERS Safety Report 7988970-6 (Version None)
Quarter: 2011Q4

REPORT INFORMATION
  Report Type: 
  Country: None (occurrence: None)
  Receive Date: 20111219
  Receipt Date: 20111207
  Transmission Date: 20120403
  Serious: Yes (Hospitalization)
  Sender: FDA-Public Use
  Company Number: US-BAYER-201033123NA

PATIENT
  Age: 45 Year
  Sex: Female
  Weight: 88.435 kg

DRUGS (11)
  1. DROSPIRENONE AND ETHINYL ESTRADIOL [Suspect]
     Dosage: UNK UNK, QD
     Route: 048
     Dates: start: 20070101, end: 20080101
  2. TOPAMAX [Concomitant]
     Dosage: 25 MG, BID
  3. LASIX [Concomitant]
     Dosage: 20 MG, QD
  4. NABUMETONE [Concomitant]
     Dosage: 500 MG, TID
  5. YASMIN [Suspect]
     Indication: CONTRACEPTION
     Dosage: UNK
     Dates: start: 20070101, end: 20080101
  6. TRAMADOL HCL [Concomitant]
     Dosage: 50 MG, QID
  7. ALLEGRA [Concomitant]
     Dosage: 180 MG, QD
  8. FLONASE [Concomitant]
     Dosage: UNK UNK, PRN
     Route: 045
  9. PROPRANOLOL [Concomitant]
     Dosage: UNK
     Dates: start: 20081204
  10. OMEPRAZOLE [Concomitant]
     Dosage: 20 MG, QD
  11. ATIVAN [Concomitant]
     Dosage: 1 MG, PRN

REACTIONS (4)
  - DEEP VEIN THROMBOSIS [None]
  - PULMONARY EMBOLISM [None]
  - EMOTIONAL DISTRESS [None]
  - WEIGHT INCREASED [None]
